FAERS Safety Report 12745321 (Version 2)
Quarter: 2016Q4

REPORT INFORMATION
  Report Type: Spontaneous
  Country: US (occurrence: US)
  Receive Date: 20160915
  Receipt Date: 20161214
  Transmission Date: 20170207
  Serious: Yes (Hospitalization)
  Sender: FDA-Public Use
  Company Number: US-TEVA-691602USA

PATIENT
  Age: 46 Year
  Sex: Male

DRUGS (2)
  1. LOPERAMIDE [Suspect]
     Active Substance: LOPERAMIDE
     Indication: IRRITABLE BOWEL SYNDROME
     Dosage: APPROXIMATELY 50 TABLETS A DAY OF 2 MG EACH, FOR MORE THAN 5 YEARS
     Route: 048
  2. LOPERAMIDE [Suspect]
     Active Substance: LOPERAMIDE
     Indication: IRRITABLE BOWEL SYNDROME
     Dosage: APPROXIMATELY 100 TABLETS A DAY OF 2 MG EACH, 2 DAYS BEFORE ADMISSION
     Route: 048

REACTIONS (5)
  - Overdose [Recovered/Resolved]
  - Torsade de pointes [Recovered/Resolved]
  - Intentional product misuse [Recovered/Resolved]
  - Ventricular arrhythmia [Recovered/Resolved]
  - Ventricular tachycardia [Recovered/Resolved]
